FAERS Safety Report 19484918 (Version 1)
Quarter: 2021Q3

REPORT INFORMATION
  Report Type: Spontaneous
  Country: FR (occurrence: FR)
  Receive Date: 20210701
  Receipt Date: 20210701
  Transmission Date: 20211014
  Serious: Yes (Hospitalization)
  Sender: FDA-Public Use
  Company Number: FR-JNJFOC-20210656965

PATIENT
  Age: 63 Year
  Sex: Male
  Weight: 70 kg

DRUGS (1)
  1. DUROGESIC [Suspect]
     Active Substance: FENTANYL
     Indication: PAIN
     Dosage: 50 UG/HOUR EVERY 3 DAYS
     Route: 062
     Dates: end: 20210425

REACTIONS (5)
  - Miosis [Recovered/Resolved]
  - Overdose [Recovered/Resolved]
  - Disturbance in attention [Recovered/Resolved]
  - Respiratory depression [Recovered/Resolved]
  - Bradypnoea [Recovered/Resolved]

NARRATIVE: CASE EVENT DATE: 20210425
